FAERS Safety Report 8256016-0 (Version None)
Quarter: 2012Q1

REPORT INFORMATION
  Report Type: 
  Country: None (occurrence: None)
  Receive Date: 20120330
  Receipt Date: 20120319
  Transmission Date: 20120608
  Serious: Yes (Death, Life-Threatening, Other)
  Sender: FDA-Public Use
  Company Number: 2012S1000075

PATIENT
  Age: 19 Year
  Sex: Male

DRUGS (13)
  1. ZEMURON [Concomitant]
  2. SODIUM BICARBONATE [Concomitant]
  3. PIPERACILLIN AND TAZOBACTAM [Concomitant]
  4. EPINEPHRINE [Concomitant]
  5. INOMAX [Suspect]
     Indication: RESPIRATORY FAILURE
     Dosage: 5 PPM;CONT;INH
     Route: 055
     Dates: start: 20111218, end: 20111218
  6. SODIUM CHLORIDE [Concomitant]
  7. VOLUVEN [Concomitant]
  8. VERSED [Concomitant]
  9. SOLU-CORTEF [Concomitant]
  10. LEVOPHED [Concomitant]
  11. FENTANYL [Concomitant]
  12. LACTATED RINGER'S [Concomitant]
  13. VASOPRESSIN INJECTION [Concomitant]

REACTIONS (4)
  - BLOOD PRESSURE DECREASED [None]
  - FAT EMBOLISM [None]
  - OXYGEN SATURATION DECREASED [None]
  - OFF LABEL USE [None]
